FAERS Safety Report 19712286 (Version 2)
Quarter: 2021Q3

REPORT INFORMATION
  Report Type: Spontaneous
  Country: IT (occurrence: IT)
  Receive Date: 20210817
  Receipt Date: 20210921
  Transmission Date: 20211014
  Serious: Yes (Hospitalization, Other)
  Sender: FDA-Public Use
  Company Number: IT-BAUSCH-BL-2021-026917

PATIENT
  Age: 56 Year
  Sex: Female
  Weight: 60 kg

DRUGS (7)
  1. RITUXIMAB. [Suspect]
     Active Substance: RITUXIMAB
     Dosage: TWO ADDITIONAL DOSES OF RITUXIMAB 375 MG/M2 EVERY 21 DAYS AFTER COMPLETION OF THE LAST CYCLE
     Route: 042
     Dates: start: 20190503, end: 20191223
  2. VINCRISTINE [Suspect]
     Active Substance: VINCRISTINE
     Indication: DOUBLE HIT LYMPHOMA
     Route: 040
     Dates: start: 201904, end: 2019
  3. ETOPOSIDE. [Suspect]
     Active Substance: ETOPOSIDE
     Indication: DOUBLE HIT LYMPHOMA
     Route: 042
     Dates: start: 201904, end: 2019
  4. DEXAMETHASONE. [Suspect]
     Active Substance: DEXAMETHASONE
     Indication: DOUBLE HIT LYMPHOMA
     Route: 040
     Dates: start: 201904, end: 2019
  5. METHOTREXATE. [Suspect]
     Active Substance: METHOTREXATE
     Indication: DOUBLE HIT LYMPHOMA
     Route: 042
     Dates: start: 201904, end: 2019
  6. RITUXIMAB. [Suspect]
     Active Substance: RITUXIMAB
     Indication: DOUBLE HIT LYMPHOMA
     Route: 042
     Dates: start: 201904, end: 2019
  7. CYTARABINE. [Suspect]
     Active Substance: CYTARABINE
     Indication: DOUBLE HIT LYMPHOMA
     Route: 042
     Dates: start: 201904, end: 2019

REACTIONS (5)
  - Bronchopulmonary aspergillosis [Recovered/Resolved]
  - Superinfection fungal [Recovered/Resolved]
  - Urinary tract infection [Recovered/Resolved]
  - COVID-19 [Recovered/Resolved]
  - Hypogammaglobulinaemia [Not Recovered/Not Resolved]

NARRATIVE: CASE EVENT DATE: 2020
